FAERS Safety Report 6125688-9 (Version None)
Quarter: 2009Q1

REPORT INFORMATION
  Report Type: 
  Country: None (occurrence: None)
  Receive Date: 20090320
  Receipt Date: 20090318
  Transmission Date: 20090719
  Serious: Yes (Life-Threatening, Hospitalization)
  Sender: FDA-Public Use
  Company Number: JP-BAYER-200910713BYL

PATIENT
  Age: 65 Year
  Sex: Male
  Weight: 64 kg

DRUGS (9)
  1. NEXAVAR [Suspect]
     Indication: RENAL CELL CARCINOMA STAGE IV
     Dosage: TOTAL DAILY DOSE: 800 MG  UNIT DOSE: 200 MG
     Route: 048
     Dates: start: 20090205, end: 20090228
  2. DIART [Concomitant]
     Route: 048
     Dates: start: 20090101
  3. LOXONIN [Concomitant]
     Route: 048
     Dates: start: 20090101, end: 20090228
  4. PARIET [Concomitant]
     Route: 048
     Dates: start: 20090101, end: 20090228
  5. LASIX [Concomitant]
     Route: 048
     Dates: start: 20090130, end: 20090228
  6. MYSLEE [Concomitant]
     Route: 048
     Dates: start: 20090219, end: 20090228
  7. OPSO [Concomitant]
     Route: 048
     Dates: start: 20090302, end: 20090304
  8. MORPHINE HYDROCHLORIDE [Concomitant]
     Route: 065
     Dates: start: 20090302, end: 20090304
  9. GASTER [Concomitant]
     Route: 065
     Dates: start: 20090302, end: 20090310

REACTIONS (2)
  - CARDIAC FAILURE [None]
  - GENERALISED OEDEMA [None]
